FAERS Safety Report 21058055 (Version 1)
Quarter: 2022Q3

REPORT INFORMATION
  Report Type: Spontaneous
  Country: US (occurrence: None)
  Receive Date: 20220707
  Receipt Date: 20220707
  Transmission Date: 20221026
  Serious: Yes (Death)
  Sender: FDA-Public Use
  Company Number: None

PATIENT
  Age: 59 Year
  Sex: Male

DRUGS (1)
  1. PROLIA [Suspect]
     Active Substance: DENOSUMAB
     Indication: Osteoporosis
     Dosage: OTHER FREQUENCY : 6 MONTHS;?OTHER ROUTE : UNDER THE SKIN;?
     Route: 050
     Dates: start: 20201222, end: 20220616

REACTIONS (1)
  - Death [None]

NARRATIVE: CASE EVENT DATE: 20220616
